FAERS Safety Report 10243723 (Version 1)
Quarter: 2014Q1

REPORT INFORMATION
  Report Type: Spontaneous
  Country: US (occurrence: None)
  Receive Date: 20140306
  Receipt Date: 20140306
  Transmission Date: 20141002
  Serious: Yes (Other)
  Sender: FDA-Public Use
  Company Number: 163-21880-13114503

PATIENT
  Age: 75 Year
  Sex: Female

DRUGS (6)
  1. REVLIMID (LENALIDOMIDE) (25 MILLIGRAM, CAPSULES) [Suspect]
     Indication: PLASMA CELL MYELOMA
     Dosage: 25MG, 21 IN 28D, PO
     Route: 048
     Dates: start: 20121115, end: 201305
  2. DEXAMETHASONE (DEXAMETHASONE) [Concomitant]
  3. ASPIRIN (ACETYLSALICYLIC ACID) (ENTERIC-COATED TABLET) [Concomitant]
  4. NEURONTIN (GABAPENTIN) [Concomitant]
  5. TRAMADOL (TRAMADOL) [Concomitant]
  6. ZOMETA (ZOLEDRONIC ACID) [Concomitant]

REACTIONS (1)
  - Neutropenia [None]
